FAERS Safety Report 5397690-6 (Version None)
Quarter: 2007Q3

REPORT INFORMATION
  Report Type: 
  Country: None (occurrence: None)
  Receive Date: 20070723
  Receipt Date: 20070723
  Transmission Date: 20080115
  Serious: Yes (Disabling)
  Sender: FDA-Public Use
  Company Number: None

PATIENT
  Sex: Female
  Weight: 77.1 kg

DRUGS (2)
  1. TAXOL [Suspect]
  2. ADDITIONAL STENT  BOSTON SCIENTIFIC TAXUS EXPRESS [Concomitant]

REACTIONS (3)
  - ANGINA PECTORIS [None]
  - CORONARY ARTERY THROMBOSIS [None]
  - DISEASE RECURRENCE [None]
